FAERS Safety Report 9281667 (Version 1)
Quarter: 2013Q2

REPORT INFORMATION
  Report Type: Spontaneous
  Country: US (occurrence: US)
  Receive Date: 20130509
  Receipt Date: 20130509
  Transmission Date: 20140414
  Serious: No
  Sender: FDA-Public Use
  Company Number: US-009507513-1305USA001688

PATIENT
  Age: 56 Year
  Sex: Female

DRUGS (5)
  1. ASMANEX TWISTHALER [Suspect]
     Indication: ASTHMA
     Dosage: 220 MICROGRAM, QD
     Route: 055
     Dates: start: 20110502
  2. VENTOLIN HFA [Concomitant]
  3. ALLEGRA [Concomitant]
  4. TRAZODONE HYDROCHLORIDE [Concomitant]
  5. DEXTROAMPHETAMINE [Concomitant]

REACTIONS (4)
  - Ear pain [Not Recovered/Not Resolved]
  - Oropharyngeal pain [Not Recovered/Not Resolved]
  - Product taste abnormal [Unknown]
  - Product quality issue [Unknown]
